FAERS Safety Report 17691225 (Version 1)
Quarter: 2020Q2

REPORT INFORMATION
  Report Type: Spontaneous
  Country: US (occurrence: US)
  Receive Date: 20200422
  Receipt Date: 20200422
  Transmission Date: 20200714
  Serious: Yes (Hospitalization, Other)
  Sender: FDA-Public Use
  Company Number: US-MICRO LABS LIMITED-ML2020-01379

PATIENT
  Age: 57 Year
  Sex: Male

DRUGS (3)
  1. FUROSEMIDE. [Suspect]
     Active Substance: FUROSEMIDE
     Indication: CARDIOGENIC SHOCK
  2. MILRINONE [Suspect]
     Active Substance: MILRINONE
     Indication: CARDIOGENIC SHOCK
  3. SODIUM NITROPRUSSIDE. [Suspect]
     Active Substance: SODIUM NITROPRUSSIDE
     Indication: CARDIOGENIC SHOCK

REACTIONS (1)
  - Drug ineffective [Unknown]
